FAERS Safety Report 6035397-2 (Version None)
Quarter: 2009Q1

REPORT INFORMATION
  Report Type: 
  Country: None (occurrence: None)
  Receive Date: 20090112
  Receipt Date: 20090112
  Transmission Date: 20090719
  Serious: No
  Sender: FDA-Public Use
  Company Number: None

PATIENT
  Age: 32 Year
  Sex: Male
  Weight: 76.2043 kg

DRUGS (1)
  1. ZICAM DISSOLVING TABLETS MATRIXX INITITATIVES [Suspect]
     Indication: NASOPHARYNGITIS
     Dosage: 1 TABLET EVERY 3 HRS/4DAYS PO 2009-4 DAYS
     Route: 048
     Dates: start: 20080105, end: 20080109

REACTIONS (1)
  - AGEUSIA [None]
